FAERS Safety Report 5113626-7 (Version None)
Quarter: 2006Q3

REPORT INFORMATION
  Report Type: 
  Country: None (occurrence: None)
  Receive Date: 20060925
  Receipt Date: 20060908
  Transmission Date: 20061208
  Serious: Yes (Life-Threatening, Hospitalization)
  Sender: FDA-Public Use
  Company Number: CH-BAYER-200613984GDS

PATIENT
  Age: 74 Year
  Sex: Female

DRUGS (5)
  1. ASPIRIN [Suspect]
     Indication: DRUG USE FOR UNKNOWN INDICATION
     Route: 048
     Dates: end: 20060829
  2. SORTIS [Concomitant]
     Indication: DRUG USE FOR UNKNOWN INDICATION
     Route: 048
  3. AERIUS [Concomitant]
     Indication: DRUG USE FOR UNKNOWN INDICATION
     Route: 048
  4. TRANXILIUM [Concomitant]
     Indication: DRUG USE FOR UNKNOWN INDICATION
     Route: 048
  5. SERETIDE [Concomitant]
     Indication: DRUG USE FOR UNKNOWN INDICATION
     Route: 055

REACTIONS (9)
  - AORTIC ANEURYSM [None]
  - AORTIC DISSECTION [None]
  - BRONCHIAL FISTULA [None]
  - CARDIAC TAMPONADE [None]
  - HYPOTENSION [None]
  - PERICARDIAL HAEMORRHAGE [None]
  - PNEUMOMEDIASTINUM [None]
  - PULSE ABSENT [None]
  - SYNCOPE [None]
